FAERS Safety Report 18447946 (Version 1)
Quarter: 2020Q4

REPORT INFORMATION
  Report Type: Spontaneous
  Country: US (occurrence: US)
  Receive Date: 20201030
  Receipt Date: 20201030
  Transmission Date: 20210114
  Serious: No
  Sender: FDA-Public Use
  Company Number: US-UPSHER-SMITH LABORATORIES, LLC-2020USL00532

PATIENT
  Sex: Male
  Weight: 122.45 kg

DRUGS (19)
  1. JANTOVEN [Suspect]
     Active Substance: WARFARIN SODIUM
     Indication: AORTIC VALVE REPLACEMENT
     Dosage: 10 MG, 1X/DAY (10 MG DAILY ON SUN, MON, TUE, WED, FRI. TAKES WITH 2.5 MG TABLET FOR A TOTAL DOSE OF
     Route: 048
     Dates: start: 20200731, end: 2020
  2. JANTOVEN [Suspect]
     Active Substance: WARFARIN SODIUM
     Indication: TRANSIENT ISCHAEMIC ATTACK
     Dosage: UNK FLUCTUATING DOSE
     Route: 048
     Dates: start: 2020
  3. LIPITOR [Concomitant]
     Active Substance: ATORVASTATIN CALCIUM
  4. VITAMIN B12 [Concomitant]
     Active Substance: CYANOCOBALAMIN
  5. NEURONTIN [Concomitant]
     Active Substance: GABAPENTIN
  6. PRINIVIL [Concomitant]
     Active Substance: LISINOPRIL
  7. TRAMADOL. [Concomitant]
     Active Substance: TRAMADOL
  8. JANTOVEN [Suspect]
     Active Substance: WARFARIN SODIUM
     Indication: CEREBROVASCULAR ACCIDENT
  9. ASPIRIN. [Concomitant]
     Active Substance: ASPIRIN
  10. JANTOVEN [Suspect]
     Active Substance: WARFARIN SODIUM
     Indication: TRANSIENT ISCHAEMIC ATTACK
     Dosage: UNK FLUCTUATING DOSE
     Route: 048
     Dates: start: 2020
  11. INDERAL [Concomitant]
     Active Substance: PROPRANOLOL HYDROCHLORIDE
  12. VITAMIN D [Concomitant]
     Active Substance: VITAMIN D NOS
  13. FLONASE [Concomitant]
     Active Substance: FLUTICASONE PROPIONATE
  14. JANTOVEN [Suspect]
     Active Substance: WARFARIN SODIUM
     Indication: AORTIC VALVE REPLACEMENT
     Dosage: 2.5 MG, 2X/WEEK (TAKE WITH 10 MG TABLET FOR 12.5 MG TOTAL DOSE ON THUR AND SAT)
     Route: 048
     Dates: start: 20200731, end: 2020
  15. METFORMIN [Concomitant]
     Active Substance: METFORMIN HYDROCHLORIDE
  16. JANTOVEN [Suspect]
     Active Substance: WARFARIN SODIUM
     Indication: CEREBROVASCULAR ACCIDENT
  17. IMDUR [Concomitant]
     Active Substance: ISOSORBIDE MONONITRATE
  18. ANTIVERT [Concomitant]
     Active Substance: MECLIZINE HYDROCHLORIDE
     Dosage: UNK, AS NEEDED
  19. MULTIVITAMIN [Concomitant]
     Active Substance: VITAMINS

REACTIONS (2)
  - International normalised ratio increased [Unknown]
  - International normalised ratio decreased [Unknown]

NARRATIVE: CASE EVENT DATE: 2020
